FAERS Safety Report 6699822-6 (Version None)
Quarter: 2010Q2

REPORT INFORMATION
  Report Type: 
  Country: None (occurrence: None)
  Receive Date: 20100428
  Receipt Date: 20100106
  Transmission Date: 20101027
  Serious: No
  Sender: FDA-Public Use
  Company Number: A0838199A

PATIENT
  Age: 19 Year
  Sex: Male

DRUGS (2)
  1. LUXIQ [Suspect]
  2. UNSPECIFIED MEDICATIONS [Suspect]
     Indication: PSORIASIS

REACTIONS (1)
  - DRUG INEFFECTIVE [None]
